FAERS Safety Report 7896660-3 (Version None)
Quarter: 2011Q4

REPORT INFORMATION
  Report Type: 
  Country: None (occurrence: None)
  Receive Date: 20111107
  Receipt Date: 20111031
  Transmission Date: 20120403
  Serious: No
  Sender: FDA-Public Use
  Company Number: US-BIOGENIDEC-2011BI029781

PATIENT
  Age: 50 Year
  Sex: Female

DRUGS (1)
  1. TYSABRI [Suspect]
     Indication: MULTIPLE SCLEROSIS
     Route: 042
     Dates: start: 20110708, end: 20110901

REACTIONS (6)
  - COORDINATION ABNORMAL [None]
  - MEMORY IMPAIRMENT [None]
  - GAIT DISTURBANCE [None]
  - COGNITIVE DISORDER [None]
  - FATIGUE [None]
  - SPEECH DISORDER [None]
